FAERS Safety Report 8169168-8 (Version None)
Quarter: 2012Q1

REPORT INFORMATION
  Report Type: 
  Country: None (occurrence: None)
  Receive Date: 20120227
  Receipt Date: 20120216
  Transmission Date: 20120608
  Serious: Yes (Hospitalization)
  Sender: FDA-Public Use
  Company Number: DE-ELI_LILLY_AND_COMPANY-DE201202004988

PATIENT
  Age: 67 Year
  Sex: Female

DRUGS (5)
  1. BYDUREON [Suspect]
     Dosage: 2 MG, UNKNOWN
     Dates: start: 20111011, end: 20111213
  2. GLIMEPIRID [Concomitant]
     Dosage: 3 MG, UNK
  3. METFORMIN HYDROCHLORIDE [Concomitant]
     Dosage: 850 MG, UNK
  4. OMEPRAZOLE [Concomitant]
     Dosage: 20 MG, UNKNOWN
  5. KERLONE [Concomitant]
     Dosage: 10 MG, UNKNOWN

REACTIONS (6)
  - CEREBROVASCULAR ACCIDENT [None]
  - NAUSEA [None]
  - INJECTION SITE NODULE [None]
  - INJECTION SITE PAIN [None]
  - MALAISE [None]
  - DIARRHOEA [None]
